FAERS Safety Report 5594974-3 (Version None)
Quarter: 2008Q1

REPORT INFORMATION
  Report Type: 
  Country: None (occurrence: None)
  Receive Date: 20080117
  Receipt Date: 20080109
  Transmission Date: 20080703
  Serious: Yes (Hospitalization)
  Sender: FDA-Public Use
  Company Number: GB-KINGPHARMUSA00001-K200800029

PATIENT

DRUGS (1)
  1. MORPHINE SULFATE [Suspect]
     Dosage: UNK, SINGLE

REACTIONS (3)
  - DRUG EXPOSURE DURING PREGNANCY [None]
  - NEONATAL RESPIRATORY DEPRESSION [None]
  - SOMNOLENCE NEONATAL [None]
